FAERS Safety Report 8023207-3 (Version None)
Quarter: 2012Q1

REPORT INFORMATION
  Report Type: 
  Country: None (occurrence: None)
  Receive Date: 20120104
  Receipt Date: 20111223
  Transmission Date: 20120608
  Serious: No
  Sender: FDA-Public Use
  Company Number: US-ELI_LILLY_AND_COMPANY-US201111002557

PATIENT
  Age: 54 Year
  Sex: Female
  Weight: 82.54 kg

DRUGS (2)
  1. HUMALOG [Suspect]
     Indication: TYPE 1 DIABETES MELLITUS
     Dosage: UNK, UNKNOWN
     Route: 058
     Dates: start: 19990101
  2. SYNTHROID [Concomitant]
     Dosage: 112 UG, QD

REACTIONS (3)
  - BLOOD GLUCOSE DECREASED [None]
  - THYROID DISORDER [None]
  - SENSITISATION [None]
